FAERS Safety Report 8439538-9 (Version None)
Quarter: 2012Q2

REPORT INFORMATION
  Report Type: 
  Country: None (occurrence: None)
  Receive Date: 20120615
  Receipt Date: 20120607
  Transmission Date: 20120825
  Serious: No
  Sender: FDA-Public Use
  Company Number: US-B.I. PHARMACEUTICALS,INC./RIDGEFIELD-2012-BP-13235BP

PATIENT
  Sex: Male

DRUGS (16)
  1. BILBERRY [Concomitant]
     Indication: NIGHT BLINDNESS
     Dosage: 470 MG
     Route: 048
     Dates: start: 20100101
  2. NAC DIAGNOSTIC REAGENT [Concomitant]
     Indication: CHRONIC OBSTRUCTIVE PULMONARY DISEASE
     Dosage: 600 MG
     Route: 048
     Dates: start: 20070101
  3. POTASSIUM GLUCONATE TAB [Concomitant]
     Indication: SUPPLEMENTATION THERAPY
  4. TAMSULOSIN HCL [Concomitant]
     Route: 048
  5. ASCORBIC ACID [Concomitant]
     Indication: SUPPLEMENTATION THERAPY
     Dosage: 1000 MG
     Route: 048
  6. B 100 [Concomitant]
     Indication: SUPPLEMENTATION THERAPY
  7. METOPROLOL SUCCINATE [Concomitant]
     Indication: HYPERTENSION
     Route: 048
     Dates: start: 20020101
  8. SPIRIVA [Suspect]
     Indication: CHRONIC OBSTRUCTIVE PULMONARY DISEASE
     Dosage: 18 MCG
     Route: 055
     Dates: start: 20080101
  9. AMLODIPINE [Concomitant]
     Indication: HYPERTENSION
     Dosage: 10 MG
     Route: 048
     Dates: start: 20070101
  10. CALCIUM [Concomitant]
     Indication: SUPPLEMENTATION THERAPY
  11. FLAXSEED OIL [Concomitant]
     Indication: SUPPLEMENTATION THERAPY
  12. LOVAZA [Concomitant]
     Indication: SUPPLEMENTATION THERAPY
  13. VITAMIN D [Concomitant]
     Indication: SUPPLEMENTATION THERAPY
     Dosage: 400 U
     Route: 048
  14. COQ10 [Concomitant]
     Indication: SUPPLEMENTATION THERAPY
     Dosage: 100 MG
     Route: 048
  15. OXYGEN [Concomitant]
     Indication: CHRONIC OBSTRUCTIVE PULMONARY DISEASE
     Route: 055
     Dates: start: 20080101
  16. ZINC SULFATE [Concomitant]
     Indication: SUPPLEMENTATION THERAPY

REACTIONS (1)
  - DYSPNOEA [None]
